FAERS Safety Report 7202418-0 (Version None)
Quarter: 2010Q4

REPORT INFORMATION
  Report Type: 
  Country: None (occurrence: None)
  Receive Date: 20101229
  Receipt Date: 20101222
  Transmission Date: 20110411
  Serious: Yes (Congenital Anomaly)
  Sender: FDA-Public Use
  Company Number: A0891500A

PATIENT

DRUGS (5)
  1. LAMICTAL [Suspect]
     Indication: BIPOLAR DISORDER
     Dosage: 200MG PER DAY
     Dates: start: 20090717, end: 20100202
  2. AMBIEN [Suspect]
     Indication: SLEEP DISORDER
     Dosage: 5MG AT NIGHT
     Dates: start: 20090904, end: 20100202
  3. NEURONTIN [Suspect]
     Indication: ANXIETY
     Dosage: 600MG THREE TIMES PER DAY
     Dates: start: 20090717, end: 20100202
  4. ADDERALL XR 10 [Suspect]
     Indication: ATTENTION DEFICIT/HYPERACTIVITY DISORDER
     Dosage: 25MG PER DAY
     Dates: start: 20080926, end: 20100202
  5. CHANTIX [Suspect]
     Dates: start: 20100105, end: 20100202

REACTIONS (2)
  - CLEFT PALATE [None]
  - DRUG EXPOSURE DURING PREGNANCY [None]
